FAERS Safety Report 25625346 (Version 4)
Quarter: 2025Q3

REPORT INFORMATION
  Report Type: Spontaneous
  Country: US (occurrence: US)
  Receive Date: 20250731
  Receipt Date: 20250902
  Transmission Date: 20251020
  Serious: No
  Sender: Haleon PLC
  Company Number: US-HALEON-2255191

PATIENT
  Sex: Female
  Weight: 58.967 kg

DRUGS (3)
  1. VOLTAREN ARTHRITIS PAIN [Suspect]
     Active Substance: DICLOFENAC SODIUM
     Indication: Analgesic therapy
     Dates: end: 20250720
  2. VOLTAREN ARTHRITIS PAIN [Suspect]
     Active Substance: DICLOFENAC SODIUM
     Indication: Arthralgia
  3. VOLTAREN ARTHRITIS PAIN [Suspect]
     Active Substance: DICLOFENAC SODIUM
     Indication: Neck pain

REACTIONS (7)
  - Drug hypersensitivity [Unknown]
  - Application site dryness [Unknown]
  - Application site pruritus [Unknown]
  - Product use in unapproved indication [Unknown]
  - Papule [Unknown]
  - Application site rash [Unknown]
  - Product administered at inappropriate site [Unknown]
